FAERS Safety Report 9871485 (Version 1)
Quarter: 2014Q1

REPORT INFORMATION
  Report Type: Spontaneous
  Country: GB (occurrence: GB)
  Receive Date: 20140205
  Receipt Date: 20140205
  Transmission Date: 20141002
  Serious: Yes (Other)
  Sender: FDA-Public Use
  Company Number: PHHY2014GB011330

PATIENT
  Age: 49 Year
  Sex: Female
  Weight: 76 kg

DRUGS (5)
  1. AMLODIPINE BESYLATE [Suspect]
     Indication: HYPERTENSION
     Dosage: 5 MG
     Route: 048
     Dates: start: 20131228, end: 20140108
  2. MIRABEGRON [Suspect]
     Indication: NEUROGENIC BLADDER
     Dosage: 50 MG, QD
     Route: 048
     Dates: start: 20131207, end: 20140108
  3. EXTAVIA [Concomitant]
  4. FULTIUM [Concomitant]
  5. HYDROXOCOBALAMIN [Concomitant]

REACTIONS (8)
  - Hemiplegic migraine [Recovered/Resolved]
  - Blindness [Unknown]
  - Hypertension [Recovered/Resolved]
  - Hot flush [Recovered/Resolved]
  - Pollakiuria [Recovered/Resolved]
  - Erythema [Recovered/Resolved]
  - Palpitations [Recovered/Resolved]
  - Hypoaesthesia [Unknown]
